FAERS Safety Report 7021539-9 (Version None)
Quarter: 2010Q3

REPORT INFORMATION
  Report Type: 
  Country: None (occurrence: None)
  Receive Date: 20100928
  Receipt Date: 20100916
  Transmission Date: 20110219
  Serious: Yes (Other)
  Sender: FDA-Public Use
  Company Number: 2010-0935

PATIENT
  Age: 33 Year
  Sex: Female
  Weight: 61.2 kg

DRUGS (3)
  1. DYSPORT [Suspect]
     Indication: OFF LABEL USE
     Dosage: (SINGLE CYCLE), PARENTERAL
     Route: 051
     Dates: start: 20100314, end: 20100314
  2. DYSPORT [Suspect]
     Indication: SKIN COSMETIC PROCEDURE
     Dosage: (SINGLE CYCLE), PARENTERAL
     Route: 051
     Dates: start: 20100314, end: 20100314
  3. DYSPORT [Suspect]
     Indication: SKIN WRINKLING
     Dosage: (SINGLE CYCLE), PARENTERAL
     Route: 051
     Dates: start: 20100314, end: 20100314

REACTIONS (4)
  - EYELID DISORDER [None]
  - OFF LABEL USE [None]
  - ROAD TRAFFIC ACCIDENT [None]
  - UNEVALUABLE EVENT [None]
